FAERS Safety Report 19112428 (Version 1)
Quarter: 2021Q2

REPORT INFORMATION
  Report Type: Spontaneous
  Country: US (occurrence: US)
  Receive Date: 20210409
  Receipt Date: 20210409
  Transmission Date: 20210717
  Serious: Yes (Hospitalization)
  Sender: FDA-Public Use
  Company Number: None

PATIENT
  Age: 68 Year
  Sex: Female
  Weight: 79.6 kg

DRUGS (1)
  1. VITAMIN D (CHOLECALCIFEROL) [Suspect]
     Active Substance: CHOLECALCIFEROL
     Indication: LYMPHOMA
     Dosage: ?          OTHER DOSE:50,000IU ;?
     Route: 048
     Dates: start: 20200311

REACTIONS (4)
  - Hypotension [None]
  - Atrial tachycardia [None]
  - Dehydration [None]
  - Stem cell transplant [None]

NARRATIVE: CASE EVENT DATE: 20210331
